FAERS Safety Report 12454876 (Version 1)
Quarter: 2016Q2

REPORT INFORMATION
  Report Type: Spontaneous
  Country: US (occurrence: US)
  Receive Date: 20160610
  Receipt Date: 20160610
  Transmission Date: 20160815
  Serious: Yes (Other)
  Sender: FDA-Public Use
  Company Number: US-GLAXOSMITHKLINE-US2016082654

PATIENT
  Age: 32 Year
  Sex: Female

DRUGS (1)
  1. TRANSDERM SCOP [Suspect]
     Active Substance: SCOPOLAMINE
     Indication: DIZZINESS
     Dosage: UNK
     Dates: end: 20160605

REACTIONS (7)
  - Application site pain [Not Recovered/Not Resolved]
  - Mydriasis [Not Recovered/Not Resolved]
  - Blindness transient [Recovered/Resolved]
  - Vision blurred [Not Recovered/Not Resolved]
  - Application site reaction [Unknown]
  - Application site burn [Not Recovered/Not Resolved]
  - Off label use [Unknown]
